FAERS Safety Report 12780143 (Version 1)
Quarter: 2016Q3

REPORT INFORMATION
  Report Type: Spontaneous
  Country: US (occurrence: US)
  Receive Date: 20160925
  Receipt Date: 20160925
  Transmission Date: 20161109
  Serious: Yes (Other)
  Sender: FDA-Public Use
  Company Number: None

PATIENT
  Age: 49 Year
  Sex: Female
  Weight: 87.75 kg

DRUGS (3)
  1. HYOSCYAMINE 0.125MG SUBLINGUAL T [Suspect]
     Active Substance: HYOSCYAMINE
     Indication: GASTROOESOPHAGEAL REFLUX DISEASE
     Dosage: 30 TABLETS 3 TIMES A DAY SUBLINGUAL
     Route: 060
  2. HYOSCYAMINE 0.125MG SUBLINGUAL T [Suspect]
     Active Substance: HYOSCYAMINE
     Indication: OESOPHAGEAL SPASM
     Dosage: 30 TABLETS 3 TIMES A DAY SUBLINGUAL
     Route: 060
  3. OMEPHRAZOLE [Concomitant]

REACTIONS (5)
  - Hallucination [None]
  - Anxiety [None]
  - Urinary incontinence [None]
  - Dizziness [None]
  - Pollakiuria [None]

NARRATIVE: CASE EVENT DATE: 20160718
